FAERS Safety Report 14687184 (Version 1)
Quarter: 2018Q1

REPORT INFORMATION
  Report Type: Spontaneous
  Country: US (occurrence: US)
  Receive Date: 20180328
  Receipt Date: 20180328
  Transmission Date: 20180509
  Serious: No
  Sender: FDA-Public Use
  Company Number: US-TEVA-2018-US-864699

PATIENT
  Sex: Female

DRUGS (1)
  1. PROAIR HFA [Suspect]
     Active Substance: ALBUTEROL SULFATE
     Indication: PNEUMONIA
     Dosage: 2 PUFFS EVERY 2 HOURS
     Dates: start: 20180222

REACTIONS (5)
  - Therapeutic response unexpected [Unknown]
  - Cough [Unknown]
  - Drug prescribing error [Unknown]
  - Secretion discharge [Unknown]
  - Product use in unapproved indication [Unknown]
